FAERS Safety Report 14362319 (Version 3)
Quarter: 2021Q4

REPORT INFORMATION
  Report Type: Spontaneous
  Country: US (occurrence: US)
  Receive Date: 20180108
  Receipt Date: 20211021
  Transmission Date: 20220303
  Serious: Yes (Disabling, Other)
  Sender: FDA-Public Use
  Company Number: US-TEVA-2018-US-843566

PATIENT
  Age: 58 Year
  Sex: Female

DRUGS (13)
  1. DOCETAXEL [Suspect]
     Active Substance: DOCETAXEL
     Indication: Invasive lobular breast carcinoma
     Dosage: DOSAGE: 75 MG/M2, NUMBER OF CYCLE - 06, FREQUENCY- EVERY THREE WEEKS
     Route: 042
     Dates: start: 20140626, end: 20141009
  2. DOCETAXEL [Suspect]
     Active Substance: DOCETAXEL
     Dosage: DOSAGE: 75 MG/M2, NUMBER OF CYCLE- 06, FREQUENCY- EVERY THREE WEEKS
     Route: 042
     Dates: start: 20140626, end: 20141009
  3. CARBOPLATIN [Suspect]
     Active Substance: CARBOPLATIN
     Indication: Invasive lobular breast carcinoma
     Dosage: DOSE: AUC 6, EVERY 3 WEEKS FOR 6 CYCLES
     Route: 042
     Dates: start: 20140626, end: 20141009
  4. DOCETAXEL [Suspect]
     Active Substance: DOCETAXEL
     Indication: Invasive lobular breast carcinoma
     Dosage: DOSE: 75 MG/M2, NUMBER OF CYCLE-06, FREQUENCY- EVERY THREE WEEKS
     Route: 042
     Dates: start: 20140626, end: 20141009
  5. TAXOTERE [Suspect]
     Active Substance: DOCETAXEL
     Indication: Invasive lobular breast carcinoma
     Dosage: NUMBER OF CYCLE- 06, FREQUENCY- EVERY THREE WEEKS WITH 75 MG DOSE
     Route: 042
     Dates: start: 20140626, end: 20141009
  6. PERTUZUMAB [Suspect]
     Active Substance: PERTUZUMAB
     Indication: Invasive lobular breast carcinoma
     Dosage: NUMBER OF CYCLE-06, FREQUENCY-EVERY THREE WEEKS
     Route: 042
     Dates: start: 20140626, end: 20141009
  7. HERCEPTIN [Suspect]
     Active Substance: TRASTUZUMAB
     Indication: Invasive lobular breast carcinoma
     Dosage: DOSE: 6MG/KG, NUMBER OF CYCLE- 06, FREQUENCY- EVERY THREE WEEKS
     Route: 042
     Dates: start: 20140626, end: 20141009
  8. METOPROLOL [Concomitant]
     Active Substance: METOPROLOL
     Dosage: 50 MILLIGRAM DAILY; 50 MG XL TABLET
     Route: 048
     Dates: start: 2010
  9. LIPITOR [Concomitant]
     Active Substance: ATORVASTATIN CALCIUM
     Dosage: 10 MILLIGRAM DAILY;
     Route: 048
     Dates: start: 2010
  10. LEXAPRO [Concomitant]
     Active Substance: ESCITALOPRAM OXALATE
     Dosage: 10 MILLIGRAM DAILY;
     Route: 048
     Dates: start: 2010
  11. MONTELUKAST [Concomitant]
     Active Substance: MONTELUKAST SODIUM
     Dosage: DOSAGE: 10 MG
     Route: 065
     Dates: start: 2010
  12. ALPHAGAN P [Concomitant]
     Active Substance: BRIMONIDINE TARTRATE
     Dosage: 1 DROP INTO BOTH EYES 3 TIMES DAILY
     Route: 031
     Dates: start: 2010
  13. LETROZOLE [Concomitant]
     Active Substance: LETROZOLE
     Dosage: 2.5 MILLIGRAM DAILY;
     Route: 048

REACTIONS (17)
  - Alopecia totalis [Not Recovered/Not Resolved]
  - Alopecia areata [Not Recovered/Not Resolved]
  - Madarosis [Not Recovered/Not Resolved]
  - Hypokalaemia [Unknown]
  - Neuropathy peripheral [Unknown]
  - Hair texture abnormal [Not Recovered/Not Resolved]
  - Hair colour changes [Not Recovered/Not Resolved]
  - Nausea [Recovered/Resolved]
  - Hypophagia [Unknown]
  - Stomatitis [Unknown]
  - Dysuria [Unknown]
  - Vulvovaginal dryness [Unknown]
  - Diarrhoea [Recovered/Resolved]
  - Rash [Unknown]
  - Dehydration [Unknown]
  - Urinary tract infection [Unknown]
  - Diastolic dysfunction [Unknown]

NARRATIVE: CASE EVENT DATE: 20140101
